FAERS Safety Report 5224547-3 (Version None)
Quarter: 2007Q1

REPORT INFORMATION
  Report Type: 
  Country: None (occurrence: None)
  Receive Date: 20070126
  Receipt Date: 20070110
  Transmission Date: 20070707
  Serious: Yes (Other)
  Sender: FDA-Public Use
  Company Number: DSA_29072_2006

PATIENT
  Age: 76 Year
  Sex: Female
  Weight: 93.441 kg

DRUGS (9)
  1. VASOTEC [Suspect]
     Indication: HYPERTENSION
     Dosage: 5 MG BID PO
     Route: 048
     Dates: start: 20010101, end: 20060801
  2. PLAVIX [Concomitant]
  3. LIPITOR [Concomitant]
  4. ZETIA [Concomitant]
  5. COREG [Concomitant]
  6. CLARITIN [Concomitant]
  7. PERCOCET [Concomitant]
  8. ASPIRIN [Concomitant]
  9. NIASPAN [Concomitant]

REACTIONS (5)
  - BUNDLE BRANCH BLOCK [None]
  - CERVICOBRACHIAL SYNDROME [None]
  - COUGH [None]
  - MYOCARDIAL INFARCTION [None]
  - MYOCARDIAL ISCHAEMIA [None]
